FAERS Safety Report 7088098-6 (Version None)
Quarter: 2010Q4

REPORT INFORMATION
  Report Type: 
  Country: None (occurrence: None)
  Receive Date: 20101108
  Receipt Date: 20101025
  Transmission Date: 20110411
  Serious: Yes (Other)
  Sender: FDA-Public Use
  Company Number: US-ELI_LILLY_AND_COMPANY-US201008003657

PATIENT
  Sex: Female

DRUGS (1)
  1. FORTEO [Suspect]
     Indication: HIP FRACTURE
     Dosage: 20 UG, DAILY (1/D)

REACTIONS (4)
  - ARTHRALGIA [None]
  - HIP SURGERY [None]
  - IMPAIRED HEALING [None]
  - PAIN IN EXTREMITY [None]
